FAERS Safety Report 8244846 (Version 4)
Quarter: 2015Q1

REPORT INFORMATION
  Report Type: Spontaneous
  Country: JP (occurrence: JP)
  Receive Date: 20111115
  Receipt Date: 20150119
  Transmission Date: 20150721
  Serious: Yes (Hospitalization)
  Sender: FDA-Public Use
  Company Number: PHHY2011JP97038

PATIENT
  Age: 76 Year
  Sex: Female
  Weight: 56 kg

DRUGS (2)
  1. AVAPRO [Suspect]
     Active Substance: IRBESARTAN
     Dosage: 1 DF, DAILY
     Route: 048
     Dates: start: 20110510, end: 20110910
  2. RASILEZ [Suspect]
     Active Substance: ALISKIREN
     Indication: HYPERTENSION
     Dosage: 150 MG, QD
     Route: 048
     Dates: start: 20110707, end: 20110910

REACTIONS (6)
  - Renal failure [Recovered/Resolved]
  - Blood urea increased [Unknown]
  - Blood creatinine increased [Unknown]
  - Blood potassium increased [Recovering/Resolving]
  - Blood pressure increased [Unknown]
  - Renal impairment [Recovering/Resolving]

NARRATIVE: CASE EVENT DATE: 20110707
